FAERS Safety Report 15570682 (Version 2)
Quarter: 2018Q4

REPORT INFORMATION
  Report Type: Spontaneous
  Country: IT (occurrence: IT)
  Receive Date: 20181031
  Receipt Date: 20181121
  Transmission Date: 20190205
  Serious: Yes (Other)
  Sender: FDA-Public Use
  Company Number: PHHY2018IT142202

PATIENT

DRUGS (3)
  1. ATENOLOL. [Suspect]
     Active Substance: ATENOLOL
     Indication: INFANTILE HAEMANGIOMA
     Dosage: 1.5 MG/KG, UNK
     Route: 065
  2. SUCROSE [Concomitant]
     Active Substance: SUCROSE
     Indication: PRODUCT USED FOR UNKNOWN INDICATION
     Dosage: 12.5G, GALENIC PREPARATION CONSISTING OF 7.5 MG/ML OF ATENOLOL 375MG ALONG WITH SUCROSE
     Route: 065
  3. ATENOLOL. [Suspect]
     Active Substance: ATENOLOL
     Dosage: 1 MG/KG, QD
     Route: 065

REACTIONS (2)
  - Bronchospasm [Unknown]
  - Product use in unapproved indication [Unknown]
